FAERS Safety Report 6428635-5 (Version None)
Quarter: 2009Q4

REPORT INFORMATION
  Report Type: 
  Country: None (occurrence: None)
  Receive Date: 20091102
  Receipt Date: 20091026
  Transmission Date: 20100525
  Serious: Yes (Hospitalization, Other)
  Sender: FDA-Public Use
  Company Number: 2009-04469

PATIENT
  Age: 50 Year
  Sex: Female
  Weight: 74.4 kg

DRUGS (5)
  1. VELCADE [Suspect]
     Indication: MULTIPLE MYELOMA
     Dates: start: 20090701
  2. CYCLOSPORINE [Suspect]
     Indication: MULTIPLE MYELOMA
  3. FLUDARABINE PHOSPHATE [Suspect]
     Indication: MULTIPLE MYELOMA
  4. MELPHALAN HYDROCHLORIDE [Suspect]
     Indication: MULTIPLE MYELOMA
  5. MYCOPHENOLATE MOFETIL [Suspect]
     Indication: MULTIPLE MYELOMA

REACTIONS (5)
  - BLOOD CREATININE INCREASED [None]
  - BLOOD UREA INCREASED [None]
  - PERICARDITIS [None]
  - RENAL ATROPHY [None]
  - ULTRASOUND KIDNEY ABNORMAL [None]
